FAERS Safety Report 19711912 (Version 2)
Quarter: 2021Q3

REPORT INFORMATION
  Report Type: Other
  Country: AR (occurrence: AR)
  Receive Date: 20210817
  Receipt Date: 20210922
  Transmission Date: 20211014
  Serious: Yes (Other)
  Sender: FDA-Public Use
  Company Number: AR-ROCHE-2696692

PATIENT
  Age: 42 Year
  Sex: Female

DRUGS (3)
  1. XOLAIR [Suspect]
     Active Substance: OMALIZUMAB
     Route: 058
     Dates: start: 20170622
  2. XOLAIR [Suspect]
     Active Substance: OMALIZUMAB
     Indication: ASTHMA
     Route: 058
     Dates: start: 20170122, end: 20200601
  3. XOLAIR [Suspect]
     Active Substance: OMALIZUMAB
     Dosage: (STARTED 26 JUL)
     Route: 058

REACTIONS (2)
  - Hernial eventration [Unknown]
  - Immunodeficiency [Unknown]
